FAERS Safety Report 7397206-9 (Version None)
Quarter: 2011Q2

REPORT INFORMATION
  Report Type: 
  Country: None (occurrence: None)
  Receive Date: 20110406
  Receipt Date: 20101006
  Transmission Date: 20111010
  Serious: Yes (Hospitalization, Other)
  Sender: FDA-Public Use
  Company Number: US-BAYER-201034751NA

PATIENT
  Sex: Female
  Weight: 53.515 kg

DRUGS (10)
  1. YAZ [Suspect]
     Indication: PRODUCT USED FOR UNKNOWN INDICATION
     Dosage: UNK
     Dates: start: 20070101, end: 20080101
  2. IRON [IRON] [Concomitant]
  3. ZOCOR [Concomitant]
     Dosage: 20 MG, QD
  4. NICODERM [Concomitant]
     Dosage: 14 MG, QD
     Route: 062
  5. AGRYLIN [Concomitant]
     Dosage: 0.5 MG, BID
  6. MIRALAX [Concomitant]
     Dosage: 17 G, PRN
  7. CLARITIN [Concomitant]
     Dosage: 10 MG, QD
  8. NEXIUM [Concomitant]
     Dosage: 40 MG, OM
  9. MULTI-VITAMIN [Concomitant]
  10. FERROUS SULFATE TAB [Concomitant]
     Dosage: 325 MG, MT

REACTIONS (9)
  - MITRAL VALVE DISEASE [None]
  - HAEMORRHAGE INTRACRANIAL [None]
  - CEREBROVASCULAR ACCIDENT [None]
  - CAROTID ARTERY OCCLUSION [None]
  - TRICUSPID VALVE DISEASE [None]
  - HEMIPLEGIA [None]
  - HEADACHE [None]
  - HEMIPARESIS [None]
  - CAROTID ARTERY STENOSIS [None]
